FAERS Safety Report 17907860 (Version 8)
Quarter: 2021Q1

REPORT INFORMATION
  Report Type: Spontaneous
  Country: US (occurrence: US)
  Receive Date: 20200617
  Receipt Date: 20210311
  Transmission Date: 20210419
  Serious: No
  Sender: FDA-Public Use
  Company Number: US-GLAXOSMITHKLINE-US2020AMR101132

PATIENT
  Age: 75 Year
  Sex: Female

DRUGS (6)
  1. ZEJULA [Suspect]
     Active Substance: NIRAPARIB
     Dosage: 200 MG, QD
     Dates: end: 20210205
  2. ZEJULA [Suspect]
     Active Substance: NIRAPARIB
     Indication: OVARIAN CANCER
     Dosage: 200 MG, QD
     Route: 065
     Dates: start: 20200602
  3. ZEJULA [Suspect]
     Active Substance: NIRAPARIB
     Dosage: 100 MG, QD
  4. ZEJULA [Suspect]
     Active Substance: NIRAPARIB
     Dosage: 100 MG, QD
     Route: 065
  5. ZEJULA [Suspect]
     Active Substance: NIRAPARIB
     Dosage: 100 MG, QD
     Route: 048
  6. ZEJULA [Suspect]
     Active Substance: NIRAPARIB
     Dosage: 100 MG, QD

REACTIONS (16)
  - Product dose omission issue [Unknown]
  - Foot operation [Unknown]
  - White blood cell count decreased [Unknown]
  - Constipation [Unknown]
  - Heart rate irregular [Recovering/Resolving]
  - Nausea [Recovering/Resolving]
  - Red blood cell count decreased [Unknown]
  - Blood pressure increased [Recovered/Resolved]
  - Blood pressure fluctuation [Recovered/Resolved]
  - Blood iron decreased [Not Recovered/Not Resolved]
  - Urine output increased [Unknown]
  - Platelet count decreased [Unknown]
  - Cardiac monitoring abnormal [Unknown]
  - Flatulence [Unknown]
  - Blood sodium decreased [Unknown]
  - Dyspepsia [Unknown]

NARRATIVE: CASE EVENT DATE: 20201218
